FAERS Safety Report 7906768-1 (Version None)
Quarter: 2011Q4

REPORT INFORMATION
  Report Type: 
  Country: None (occurrence: None)
  Receive Date: 20111109
  Receipt Date: 20111109
  Transmission Date: 20120403
  Serious: Yes (Hospitalization, Disabling)
  Sender: FDA-Public Use
  Company Number: None

PATIENT
  Sex: Male
  Weight: 90.7194 kg

DRUGS (2)
  1. RIBAVIRIN [Suspect]
     Indication: HEPATITIS C
     Dosage: 200MGS 7 TAB A DAY 3AM 4PM
     Dates: start: 20110201, end: 20110801
  2. PEG-INTRON [Suspect]
     Dosage: 150 MCG 1X A WEEK 1 SHOT PER WEEK
     Dates: start: 20110201, end: 20110801

REACTIONS (3)
  - AMNESIA [None]
  - AGGRESSION [None]
  - PERSONALITY CHANGE [None]
